FAERS Safety Report 17654930 (Version 1)
Quarter: 2020Q2

REPORT INFORMATION
  Report Type: Spontaneous
  Country: GB (occurrence: GB)
  Receive Date: 20200410
  Receipt Date: 20200410
  Transmission Date: 20200713
  Serious: Yes (Disabling, Other)
  Sender: FDA-Public Use
  Company Number: GB-LEO PHARMA-329127

PATIENT
  Age: 30 Year
  Sex: Male
  Weight: 65 kg

DRUGS (2)
  1. PROTOPIC [Suspect]
     Active Substance: TACROLIMUS
     Indication: ECZEMA
     Dosage: TWICE DAILY FOR FIRST 2 WEEKS, ONCE DAILY FOR LAST 2 WEEKS
     Route: 061
     Dates: start: 20191111
  2. PROTOPIC [Suspect]
     Active Substance: TACROLIMUS
     Dosage: ONCE DAILY FOR LAST 2 WEEKS
     Dates: start: 201911, end: 20191208

REACTIONS (2)
  - Miliaria [Not Recovered/Not Resolved]
  - Temperature intolerance [Not Recovered/Not Resolved]

NARRATIVE: CASE EVENT DATE: 20191116
